FAERS Safety Report 15667933 (Version 2)
Quarter: 2018Q4

REPORT INFORMATION
  Report Type: Report from Study
  Country: None (occurrence: US)
  Receive Date: 20181128
  Receipt Date: 20181217
  Transmission Date: 20190205
  Serious: Yes (Hospitalization, Other)
  Sender: FDA-Public Use
  Company Number: US-ABBVIE-18K-163-2530720-00

PATIENT
  Age: 49 Year
  Sex: Female
  Weight: 63.11 kg

DRUGS (1)
  1. HUMIRA [Suspect]
     Active Substance: ADALIMUMAB
     Indication: ANKYLOSING SPONDYLITIS
     Route: 058
     Dates: start: 201610, end: 20180920

REACTIONS (19)
  - Nausea [Recovering/Resolving]
  - Pain in extremity [Recovering/Resolving]
  - Encephalitis [Recovered/Resolved]
  - Immunodeficiency [Unknown]
  - Pain [Not Recovered/Not Resolved]
  - Herpes simplex meningitis [Recovered/Resolved]
  - Feeling abnormal [Not Recovered/Not Resolved]
  - Fluid intake reduced [Recovered/Resolved]
  - Somnambulism [Unknown]
  - Asthenia [Not Recovered/Not Resolved]
  - Musculoskeletal stiffness [Not Recovered/Not Resolved]
  - Hypophagia [Recovered/Resolved]
  - Arthralgia [Recovering/Resolving]
  - Migraine [Recovered/Resolved]
  - Influenza like illness [Recovered/Resolved]
  - Inflammation [Recovering/Resolving]
  - Insomnia [Not Recovered/Not Resolved]
  - Arthritis [Recovering/Resolving]
  - Back pain [Recovering/Resolving]

NARRATIVE: CASE EVENT DATE: 2018
